FAERS Safety Report 19846915 (Version 4)
Quarter: 2021Q4

REPORT INFORMATION
  Report Type: Spontaneous
  Country: JP (occurrence: None)
  Receive Date: 20210917
  Receipt Date: 20211203
  Transmission Date: 20220303
  Serious: Yes (Death, Hospitalization, Other)
  Sender: FDA-Public Use
  Company Number: 2021A649993

PATIENT
  Age: 71 Year
  Sex: Male

DRUGS (2)
  1. LYNPARZA [Suspect]
     Active Substance: OLAPARIB
     Indication: Pancreatic carcinoma stage IV
     Route: 048
     Dates: start: 20210712, end: 20210726
  2. LYNPARZA [Suspect]
     Active Substance: OLAPARIB
     Indication: Pancreatic carcinoma stage IV
     Route: 048
     Dates: end: 202108

REACTIONS (4)
  - Malignant neoplasm progression [Fatal]
  - Interstitial lung disease [Recovered/Resolved]
  - Anaemia [Unknown]
  - Lymphangiosis carcinomatosa [Unknown]

NARRATIVE: CASE EVENT DATE: 20210726
